FAERS Safety Report 5444049-9 (Version None)
Quarter: 2007Q3

REPORT INFORMATION
  Report Type: 
  Country: None (occurrence: None)
  Receive Date: 20070905
  Receipt Date: 20070828
  Transmission Date: 20080115
  Serious: Yes (Other)
  Sender: FDA-Public Use
  Company Number: US-MERCK-0304USA00075

PATIENT
  Age: 42 Year
  Sex: Male
  Weight: 111 kg

DRUGS (4)
  1. MEVACOR [Suspect]
     Indication: HYPERCHOLESTEROLAEMIA
     Route: 048
     Dates: start: 20021217, end: 20030218
  2. MEVACOR [Suspect]
     Route: 048
     Dates: start: 20030219, end: 20030320
  3. MEVACOR [Suspect]
     Indication: LIPIDS INCREASED
     Route: 048
     Dates: start: 20021217, end: 20030218
  4. MEVACOR [Suspect]
     Route: 048
     Dates: start: 20030219, end: 20030320

REACTIONS (25)
  - ANGER [None]
  - ANXIETY [None]
  - ASTHENIA [None]
  - DEPRESSION [None]
  - DIZZINESS [None]
  - FALL [None]
  - FEAR [None]
  - FEELING ABNORMAL [None]
  - FEELING OF DESPAIR [None]
  - FLUSHING [None]
  - GAIT DISTURBANCE [None]
  - GRIMACING [None]
  - HEADACHE [None]
  - LIVER FUNCTION TEST ABNORMAL [None]
  - LOSS OF LIBIDO [None]
  - MENTAL IMPAIRMENT [None]
  - MUSCLE SPASMS [None]
  - MUSCLE TIGHTNESS [None]
  - MUSCULAR WEAKNESS [None]
  - NAUSEA [None]
  - PANIC DISORDER [None]
  - PSYCHOMOTOR HYPERACTIVITY [None]
  - SENSORY DISTURBANCE [None]
  - TREMOR [None]
  - VERTIGO [None]
